FAERS Safety Report 25833184 (Version 2)
Quarter: 2025Q4

REPORT INFORMATION
  Report Type: Spontaneous
  Country: US (occurrence: US)
  Receive Date: 20250922
  Receipt Date: 20251205
  Transmission Date: 20260118
  Serious: Yes (Other)
  Sender: ELI LILLY AND COMPANY
  Company Number: US-ELI_LILLY_AND_COMPANY-US202509011770

PATIENT
  Age: 71 Year
  Sex: Female
  Weight: 64.399 kg

DRUGS (48)
  1. MOUNJARO [Suspect]
     Active Substance: TIRZEPATIDE
     Indication: Type 2 diabetes mellitus
     Dosage: 2.5 MG, WEEKLY (1/W)
     Route: 058
  2. MOUNJARO [Suspect]
     Active Substance: TIRZEPATIDE
     Indication: Type 2 diabetes mellitus
     Dosage: 2.5 MG, WEEKLY (1/W)
     Route: 058
  3. MOUNJARO [Suspect]
     Active Substance: TIRZEPATIDE
     Indication: Type 2 diabetes mellitus
     Dosage: 2.5 MG, WEEKLY (1/W)
     Route: 058
  4. MOUNJARO [Suspect]
     Active Substance: TIRZEPATIDE
     Indication: Type 2 diabetes mellitus
     Dosage: 2.5 MG, WEEKLY (1/W)
     Route: 058
  5. MOUNJARO [Suspect]
     Active Substance: TIRZEPATIDE
     Indication: Hyperglycaemia
  6. MOUNJARO [Suspect]
     Active Substance: TIRZEPATIDE
     Indication: Hyperglycaemia
  7. MOUNJARO [Suspect]
     Active Substance: TIRZEPATIDE
     Indication: Hyperglycaemia
  8. MOUNJARO [Suspect]
     Active Substance: TIRZEPATIDE
     Indication: Hyperglycaemia
  9. MOUNJARO [Suspect]
     Active Substance: TIRZEPATIDE
     Indication: Type 2 diabetes mellitus
     Dosage: 5 MG, WEEKLY (1/W)
     Route: 058
  10. MOUNJARO [Suspect]
     Active Substance: TIRZEPATIDE
     Indication: Type 2 diabetes mellitus
     Dosage: 5 MG, WEEKLY (1/W)
     Route: 058
  11. MOUNJARO [Suspect]
     Active Substance: TIRZEPATIDE
     Indication: Type 2 diabetes mellitus
     Dosage: 5 MG, WEEKLY (1/W)
     Route: 058
  12. MOUNJARO [Suspect]
     Active Substance: TIRZEPATIDE
     Indication: Type 2 diabetes mellitus
     Dosage: 5 MG, WEEKLY (1/W)
     Route: 058
  13. MOUNJARO [Suspect]
     Active Substance: TIRZEPATIDE
     Indication: Hyperglycaemia
  14. MOUNJARO [Suspect]
     Active Substance: TIRZEPATIDE
     Indication: Hyperglycaemia
  15. MOUNJARO [Suspect]
     Active Substance: TIRZEPATIDE
     Indication: Hyperglycaemia
  16. MOUNJARO [Suspect]
     Active Substance: TIRZEPATIDE
     Indication: Hyperglycaemia
  17. MOUNJARO [Suspect]
     Active Substance: TIRZEPATIDE
     Indication: Type 2 diabetes mellitus
     Dosage: 7.5 MG, WEEKLY (1/W)
     Route: 058
  18. MOUNJARO [Suspect]
     Active Substance: TIRZEPATIDE
     Indication: Type 2 diabetes mellitus
     Dosage: 7.5 MG, WEEKLY (1/W)
     Route: 058
  19. MOUNJARO [Suspect]
     Active Substance: TIRZEPATIDE
     Indication: Type 2 diabetes mellitus
     Dosage: 7.5 MG, WEEKLY (1/W)
     Route: 058
  20. MOUNJARO [Suspect]
     Active Substance: TIRZEPATIDE
     Indication: Type 2 diabetes mellitus
     Dosage: 7.5 MG, WEEKLY (1/W)
     Route: 058
  21. MOUNJARO [Suspect]
     Active Substance: TIRZEPATIDE
     Indication: Hyperglycaemia
  22. MOUNJARO [Suspect]
     Active Substance: TIRZEPATIDE
     Indication: Hyperglycaemia
  23. MOUNJARO [Suspect]
     Active Substance: TIRZEPATIDE
     Indication: Hyperglycaemia
  24. MOUNJARO [Suspect]
     Active Substance: TIRZEPATIDE
     Indication: Hyperglycaemia
  25. MOUNJARO [Suspect]
     Active Substance: TIRZEPATIDE
     Indication: Type 2 diabetes mellitus
     Dosage: 10 MG, WEEKLY (1/W)
     Route: 058
  26. MOUNJARO [Suspect]
     Active Substance: TIRZEPATIDE
     Indication: Type 2 diabetes mellitus
     Dosage: 10 MG, WEEKLY (1/W)
     Route: 058
  27. MOUNJARO [Suspect]
     Active Substance: TIRZEPATIDE
     Indication: Type 2 diabetes mellitus
     Dosage: 10 MG, WEEKLY (1/W)
     Route: 058
  28. MOUNJARO [Suspect]
     Active Substance: TIRZEPATIDE
     Indication: Type 2 diabetes mellitus
     Dosage: 10 MG, WEEKLY (1/W)
     Route: 058
  29. MOUNJARO [Suspect]
     Active Substance: TIRZEPATIDE
     Indication: Hyperglycaemia
  30. MOUNJARO [Suspect]
     Active Substance: TIRZEPATIDE
     Indication: Hyperglycaemia
  31. MOUNJARO [Suspect]
     Active Substance: TIRZEPATIDE
     Indication: Hyperglycaemia
  32. MOUNJARO [Suspect]
     Active Substance: TIRZEPATIDE
     Indication: Hyperglycaemia
  33. MOUNJARO [Suspect]
     Active Substance: TIRZEPATIDE
     Indication: Type 2 diabetes mellitus
     Dosage: 12.5 MG, WEEKLY (1/W)
     Route: 058
     Dates: start: 20230222
  34. MOUNJARO [Suspect]
     Active Substance: TIRZEPATIDE
     Indication: Type 2 diabetes mellitus
     Dosage: 12.5 MG, WEEKLY (1/W)
     Route: 058
     Dates: start: 20230222
  35. MOUNJARO [Suspect]
     Active Substance: TIRZEPATIDE
     Indication: Type 2 diabetes mellitus
     Dosage: 12.5 MG, WEEKLY (1/W)
     Route: 058
     Dates: start: 20230222
  36. MOUNJARO [Suspect]
     Active Substance: TIRZEPATIDE
     Indication: Type 2 diabetes mellitus
     Dosage: 12.5 MG, WEEKLY (1/W)
     Route: 058
     Dates: start: 20230222
  37. MOUNJARO [Suspect]
     Active Substance: TIRZEPATIDE
     Indication: Hyperglycaemia
  38. MOUNJARO [Suspect]
     Active Substance: TIRZEPATIDE
     Indication: Hyperglycaemia
  39. MOUNJARO [Suspect]
     Active Substance: TIRZEPATIDE
     Indication: Hyperglycaemia
  40. MOUNJARO [Suspect]
     Active Substance: TIRZEPATIDE
     Indication: Hyperglycaemia
  41. MOUNJARO [Suspect]
     Active Substance: TIRZEPATIDE
     Indication: Type 2 diabetes mellitus
     Dosage: 15 MG, WEEKLY (1/W)
     Route: 058
  42. MOUNJARO [Suspect]
     Active Substance: TIRZEPATIDE
     Indication: Type 2 diabetes mellitus
     Dosage: 15 MG, WEEKLY (1/W)
     Route: 058
  43. MOUNJARO [Suspect]
     Active Substance: TIRZEPATIDE
     Indication: Type 2 diabetes mellitus
     Dosage: 15 MG, WEEKLY (1/W)
     Route: 058
  44. MOUNJARO [Suspect]
     Active Substance: TIRZEPATIDE
     Indication: Type 2 diabetes mellitus
     Dosage: 15 MG, WEEKLY (1/W)
     Route: 058
  45. MOUNJARO [Suspect]
     Active Substance: TIRZEPATIDE
     Indication: Hyperglycaemia
  46. MOUNJARO [Suspect]
     Active Substance: TIRZEPATIDE
     Indication: Hyperglycaemia
  47. MOUNJARO [Suspect]
     Active Substance: TIRZEPATIDE
     Indication: Hyperglycaemia
  48. MOUNJARO [Suspect]
     Active Substance: TIRZEPATIDE
     Indication: Hyperglycaemia

REACTIONS (3)
  - Bell^s palsy [Not Recovered/Not Resolved]
  - Dysgraphia [Unknown]
  - Incorrect dose administered [Unknown]

NARRATIVE: CASE EVENT DATE: 20230711
